FAERS Safety Report 20989808 (Version 2)
Quarter: 2022Q2

REPORT INFORMATION
  Report Type: Spontaneous
  Country: US (occurrence: US)
  Receive Date: 20220621
  Receipt Date: 20220623
  Transmission Date: 20220721
  Serious: Yes (Other)
  Sender: FDA-Public Use
  Company Number: US-PURDUE-USA-2021-0289698

PATIENT
  Sex: Male

DRUGS (1)
  1. OXYCODONE HYDROCHLORIDE [Suspect]
     Active Substance: OXYCODONE HYDROCHLORIDE
     Indication: Product used for unknown indication
     Dosage: 4X10 MG, Q4H
     Route: 048
     Dates: start: 2010, end: 2017

REACTIONS (2)
  - Overdose [Unknown]
  - Drug dependence [Recovered/Resolved]

NARRATIVE: CASE EVENT DATE: 20100101
